FAERS Safety Report 8276443-5 (Version None)
Quarter: 2012Q2

REPORT INFORMATION
  Report Type: 
  Country: None (occurrence: None)
  Receive Date: 20120412
  Receipt Date: 20120405
  Transmission Date: 20120825
  Serious: No
  Sender: FDA-Public Use
  Company Number: US-PFIZER INC-2012087190

PATIENT
  Sex: Female

DRUGS (3)
  1. CLINDAMYCIN HCL [Suspect]
     Dosage: UNK
  2. BENZATHINE PENICILLIN G [Suspect]
     Dosage: UNK
  3. MORPHINE [Suspect]
     Dosage: UNK

REACTIONS (1)
  - DRUG HYPERSENSITIVITY [None]
